FAERS Safety Report 5368566-5 (Version None)
Quarter: 2007Q2

REPORT INFORMATION
  Report Type: 
  Country: None (occurrence: None)
  Receive Date: 20070625
  Receipt Date: 20070620
  Transmission Date: 20071010
  Serious: Yes (Death)
  Sender: FDA-Public Use
  Company Number: JP-AVENTIS-200711616JP

PATIENT
  Age: 80 Year
  Sex: Male
  Weight: 50.5 kg

DRUGS (1)
  1. TAXOTERE [Suspect]
     Dates: start: 20070425

REACTIONS (1)
  - INTERSTITIAL LUNG DISEASE [None]
